FAERS Safety Report 5756218-9 (Version None)
Quarter: 2008Q2

REPORT INFORMATION
  Report Type: 
  Country: None (occurrence: None)
  Receive Date: 20080602
  Receipt Date: 20080521
  Transmission Date: 20081010
  Serious: Yes (Death, Other)
  Sender: FDA-Public Use
  Company Number: US-PFIZER INC-2008027008

PATIENT
  Sex: Female
  Weight: 73.5 kg

DRUGS (4)
  1. DILANTIN [Suspect]
     Indication: EPILEPSY
     Route: 048
  2. ALL OTHER THERAPEUTIC PRODUCTS [Suspect]
     Indication: CONVULSION
  3. KEPPRA [Concomitant]
     Route: 048
  4. TOPAMAX [Concomitant]
     Route: 048

REACTIONS (9)
  - ANTICONVULSANT DRUG LEVEL DECREASED [None]
  - ANTICONVULSANT DRUG LEVEL INCREASED [None]
  - CONVULSION [None]
  - DRUG DOSE OMISSION [None]
  - GRAND MAL CONVULSION [None]
  - HYPERSOMNIA [None]
  - MALAISE [None]
  - SOMNOLENCE [None]
  - WEIGHT DECREASED [None]
